FAERS Safety Report 25515164 (Version 3)
Quarter: 2025Q4

REPORT INFORMATION
  Report Type: Spontaneous
  Country: US (occurrence: US)
  Receive Date: 20250703
  Receipt Date: 20251003
  Transmission Date: 20260117
  Serious: Yes (Other)
  Sender: RANBAXY
  Company Number: US-SUN PHARMACEUTICAL INDUSTRIES LTD-2025R1-514693

PATIENT
  Age: 3 Year
  Sex: Male
  Weight: 8 kg

DRUGS (4)
  1. SEVOFLURANE [Suspect]
     Active Substance: SEVOFLURANE
     Indication: Obstructive airways disorder
     Dosage: UNK
     Route: 065
  2. LIDOCAINE [Suspect]
     Active Substance: LIDOCAINE
     Indication: Obstructive airways disorder
     Dosage: UNK
     Route: 061
  3. PROPOFOL [Suspect]
     Active Substance: PROPOFOL
     Indication: Obstructive airways disorder
     Dosage: 300 MICROGRAM PER MILLIGRAM PER MIN
     Route: 042
  4. PROPOFOL [Suspect]
     Active Substance: PROPOFOL
     Dosage: 500 MICROGRAM PER MILLIGRAM
     Route: 042

REACTIONS (2)
  - Oxygen saturation decreased [Unknown]
  - Bradycardia [Unknown]
